FAERS Safety Report 4978898-8 (Version None)
Quarter: 2006Q2

REPORT INFORMATION
  Report Type: 
  Country: None (occurrence: None)
  Receive Date: 20060421
  Receipt Date: 20060419
  Transmission Date: 20061013
  Serious: Yes (Hospitalization)
  Sender: FDA-Public Use
  Company Number: US-RB-3145-2006

PATIENT

DRUGS (1)
  1. SUBOXONE [Suspect]

REACTIONS (1)
  - SUICIDE ATTEMPT [None]
